FAERS Safety Report 24115894 (Version 1)
Quarter: 2024Q3

REPORT INFORMATION
  Report Type: Report from Study
  Country: US (occurrence: US)
  Receive Date: 20240721
  Receipt Date: 20240721
  Transmission Date: 20241016
  Serious: Yes (Other)
  Sender: ABBVIE
  Company Number: US-ABBVIE-5842279

PATIENT
  Age: 27 Year
  Sex: Male

DRUGS (1)
  1. HUMIRA [Suspect]
     Active Substance: ADALIMUMAB
     Indication: Crohn^s disease
     Dosage: CITRATE FREE
     Route: 058
     Dates: start: 20230130

REACTIONS (2)
  - Intestinal dilatation [Unknown]
  - Gastrointestinal procedural complication [Unknown]

NARRATIVE: CASE EVENT DATE: 20240601
